FAERS Safety Report 17569900 (Version 1)
Quarter: 2020Q1

REPORT INFORMATION
  Report Type: Spontaneous
  Country: US (occurrence: US)
  Receive Date: 20200316
  Receipt Date: 20200316
  Transmission Date: 20200409
  Serious: No
  Sender: FDA-Public Use
  Company Number: None

PATIENT
  Age: 90 Year
  Sex: Male

DRUGS (1)
  1. CHOLECALCIFEROL (CHOLECALCIFEROL 50,000 UNIT CAP, ORAL) [Suspect]
     Active Substance: CHOLECALCIFEROL
     Dosage: ?          OTHER STRENGTH:50,000UNIT;?
     Route: 048
     Dates: start: 20190114, end: 20200115

REACTIONS (1)
  - Vertigo [None]

NARRATIVE: CASE EVENT DATE: 20200115
